FAERS Safety Report 9462917 (Version 1)
Quarter: 2013Q3

REPORT INFORMATION
  Report Type: Spontaneous
  Country: GB (occurrence: None)
  Receive Date: 20130814
  Receipt Date: 20130814
  Transmission Date: 20140515
  Serious: Yes (Hospitalization, Other)
  Sender: FDA-Public Use
  Company Number: CL-511-2013

PATIENT
  Sex: Male

DRUGS (7)
  1. LEVOFLOXACIN [Suspect]
     Indication: PNEUMONIA
     Dosage: 500MG BD ORAL
     Route: 048
     Dates: start: 20100111, end: 20100111
  2. ESCITALOPRAM [Concomitant]
  3. VALPROIC ACID [Concomitant]
  4. PANTOPRAZOLE [Concomitant]
  5. ARIPIPRAZOLE [Concomitant]
  6. CLOZEPAM [Concomitant]
  7. OSELTAMIVIR [Concomitant]

REACTIONS (3)
  - Hallucination, visual [None]
  - Disorientation [None]
  - Delirium [None]
